FAERS Safety Report 6406844-9 (Version None)
Quarter: 2009Q4

REPORT INFORMATION
  Report Type: 
  Country: None (occurrence: None)
  Receive Date: 20091020
  Receipt Date: 20091005
  Transmission Date: 20100525
  Serious: Yes (Other)
  Sender: FDA-Public Use
  Company Number: IN-ROCHE-660349

PATIENT
  Age: 24 Month
  Sex: Male

DRUGS (12)
  1. ALL-TRANS-RETINOIC ACID [Suspect]
     Route: 048
  2. ALL-TRANS-RETINOIC ACID [Suspect]
     Route: 048
  3. ALL-TRANS-RETINOIC ACID [Suspect]
     Route: 048
  4. ALL-TRANS-RETINOIC ACID [Suspect]
     Dosage: DOSE TAKEN 15 DAYS EVERY MONTH FOR 6 MONTHS
     Route: 048
  5. ALL-TRANS-RETINOIC ACID [Suspect]
     Dosage: INDUCTION RESTARTED
     Route: 048
  6. ALL-TRANS-RETINOIC ACID [Suspect]
     Dosage: INTERMIITENT THERAPY FOR 7 DAYS A MONTH
     Route: 048
  7. DAUNORUBICIN HCL [Suspect]
     Dosage: 1 DOSE
     Route: 065
  8. DAUNORUBICIN HCL [Suspect]
     Dosage: 2 CYCLES OF THERAPY
     Route: 065
  9. DAUNORUBICIN HCL [Suspect]
     Dosage: INDUCTION STARTED FOR 3 DOSES, CUMULATIVE DOSE APPROXIMATELY 500 MG/M2
     Route: 065
  10. ARSENIC TRIOXIDE [Suspect]
     Indication: ACUTE PROMYELOCYTIC LEUKAEMIA
     Route: 065
  11. ARSENIC TRIOXIDE [Suspect]
     Dosage: CONSOLIDATION THERAPY
     Route: 065
  12. ARSENIC TRIOXIDE [Suspect]
     Dosage: DOSE TAKEN 10 DAYS EVERY MONTH
     Route: 065

REACTIONS (6)
  - ACUTE PROMYELOCYTIC LEUKAEMIA [None]
  - CATHETER SITE INFECTION [None]
  - GASTROINTESTINAL HAEMORRHAGE [None]
  - MENINGITIS [None]
  - RETINOIC ACID SYNDROME [None]
  - SEPSIS [None]
